FAERS Safety Report 7956166-X (Version None)
Quarter: 2011Q4

REPORT INFORMATION
  Report Type: 
  Country: None (occurrence: None)
  Receive Date: 20111205
  Receipt Date: 20111125
  Transmission Date: 20120403
  Serious: Yes (Other)
  Sender: FDA-Public Use
  Company Number: FR-AMGEN-FRASP2011063336

PATIENT
  Age: 56 Year
  Sex: Male

DRUGS (6)
  1. BETA BLOCKING AGENTS [Concomitant]
     Dosage: UNK
  2. ESCITALOPRAM [Concomitant]
     Dosage: UNK
  3. PREDNISONE TAB [Concomitant]
     Dosage: 5 MG, UNK
  4. CRESTOR [Concomitant]
     Dosage: UNK
  5. ASPIRIN [Concomitant]
     Dosage: UNK
  6. ENBREL [Suspect]
     Indication: RHEUMATOID ARTHRITIS
     Dosage: 50 MG, UNK
     Dates: start: 20100101

REACTIONS (1)
  - RETINAL TEAR [None]
